FAERS Safety Report 6214844-7 (Version None)
Quarter: 2009Q2

REPORT INFORMATION
  Report Type: 
  Country: None (occurrence: None)
  Receive Date: 20090604
  Receipt Date: 20090528
  Transmission Date: 20091009
  Serious: Yes (Other)
  Sender: FDA-Public Use
  Company Number: US-ROCHE-635574

PATIENT
  Sex: Male

DRUGS (1)
  1. CAPECITABINE [Suspect]
     Indication: RECTAL CANCER METASTATIC
     Dosage: TOOK FOUR CYCLES OF CAPECITABINE
     Route: 048
     Dates: start: 20090305

REACTIONS (1)
  - DISEASE PROGRESSION [None]
